FAERS Safety Report 6757846-4 (Version None)
Quarter: 2010Q2

REPORT INFORMATION
  Report Type: 
  Country: None (occurrence: None)
  Receive Date: 20100607
  Receipt Date: 20100527
  Transmission Date: 20101027
  Serious: Yes (Other)
  Sender: FDA-Public Use
  Company Number: PHHY2010JP23662

PATIENT
  Sex: Female
  Weight: 38 kg

DRUGS (16)
  1. DIOVAN [Suspect]
     Indication: HYPERTENSION
     Dosage: 80 MG
     Route: 048
     Dates: start: 20080315, end: 20100129
  2. LASIX [Suspect]
     Indication: HYPERTENSION
     Dosage: 10 MG
     Route: 048
     Dates: start: 20090501
  3. ALDACTONE [Suspect]
     Indication: HYPERTENSION
     Dosage: 25 MG
     Route: 048
     Dates: start: 20090501, end: 20100129
  4. CONIEL [Concomitant]
     Indication: HYPERTENSION
     Dosage: 2 MG
     Route: 048
     Dates: start: 20071109
  5. MERISLON [Concomitant]
     Dosage: 18 MG
     Route: 048
     Dates: end: 20071015
  6. SIGMART [Concomitant]
     Dosage: 15 MG
     Route: 048
     Dates: end: 20100129
  7. MEVALOTIN [Concomitant]
     Dosage: 10 MG
     Route: 048
     Dates: end: 20070929
  8. LIVALO [Concomitant]
     Dosage: 1 MG
     Route: 048
     Dates: start: 20090126, end: 20100129
  9. MAGNESIUM OXIDE [Concomitant]
     Dosage: 1 G
     Route: 048
     Dates: start: 20070906
  10. CARNACULIN [Concomitant]
     Dosage: 150 IU
     Route: 048
     Dates: end: 20071015
  11. FOLIAMIN [Concomitant]
     Dosage: 20 MG
     Route: 048
     Dates: start: 20070906, end: 20090930
  12. FOLIAMIN [Concomitant]
     Dosage: 10 MG
     Route: 048
  13. CYANOCOBALAMIN [Concomitant]
     Dosage: 1000?G
     Route: 030
     Dates: start: 20070906
  14. FERROMIA [Concomitant]
     Dosage: 4 DF
     Route: 048
     Dates: start: 20070906, end: 20100129
  15. FERROMIA [Concomitant]
     Dosage: 2 DF
     Route: 048
  16. FERROMIA [Concomitant]
     Dosage: 1 DF
     Route: 048

REACTIONS (3)
  - BLOOD CREATININE INCREASED [None]
  - BLOOD PRESSURE DIASTOLIC DECREASED [None]
  - HYPERKALAEMIA [None]
